FAERS Safety Report 15490504 (Version 2)
Quarter: 2018Q4

REPORT INFORMATION
  Report Type: Report from Study
  Country: HU (occurrence: HU)
  Receive Date: 20181011
  Receipt Date: 20181114
  Transmission Date: 20190205
  Serious: Yes (Death, Other)
  Sender: FDA-Public Use
  Company Number: PHHY2018HU122131

PATIENT
  Age: 70 Year
  Sex: Female
  Weight: 69 kg

DRUGS (5)
  1. MEDROL [Concomitant]
     Active Substance: METHYLPREDNISOLONE
     Indication: STEROID THERAPY
     Dosage: UNK UNK, QD (1X/DAILY, IN THE MORNING, AFTER CHEMOTHERAPY FOR 3 DAYS)
     Route: 048
     Dates: start: 20180622
  2. RETAFYLLIN [Concomitant]
     Active Substance: THEOPHYLLINE
     Indication: CHRONIC OBSTRUCTIVE PULMONARY DISEASE
     Dosage: UNK
     Route: 065
     Dates: start: 20180426
  3. ZARZIO [Suspect]
     Active Substance: FILGRASTIM
     Indication: NEUTROPENIA
     Dosage: 48 M IU, QD (1 AMPOULE/DAILY, 24 HOURS AFTER TREATMENT FOR 10 DAYS (PRE-FILLED SYRINGE))
     Route: 058
     Dates: start: 20180505
  4. ZARZIO [Suspect]
     Active Substance: FILGRASTIM
     Indication: PROPHYLAXIS
  5. PROPYCIL [Concomitant]
     Active Substance: PROPYLTHIOURACIL
     Indication: HYPERTHYROIDISM
     Dosage: 10 MG, QD
     Route: 065
     Dates: start: 201801

REACTIONS (9)
  - Neoplasm malignant [Unknown]
  - White blood cell disorder [Unknown]
  - Chronic obstructive pulmonary disease [Unknown]
  - Acute respiratory failure [Fatal]
  - Cardiac failure [Fatal]
  - Lung neoplasm malignant [Fatal]
  - Anaemia [Unknown]
  - General physical health deterioration [Fatal]
  - Malignant neoplasm progression [Fatal]

NARRATIVE: CASE EVENT DATE: 20180824
